FAERS Safety Report 7476946-7 (Version None)
Quarter: 2011Q2

REPORT INFORMATION
  Report Type: 
  Country: None (occurrence: None)
  Receive Date: 20110512
  Receipt Date: 20110428
  Transmission Date: 20111010
  Serious: Yes (Other)
  Sender: FDA-Public Use
  Company Number: US-BAYER-2011-038106

PATIENT
  Age: 29 Year
  Sex: Male
  Weight: 100 kg

DRUGS (1)
  1. CAMPHO-PHENIQUE ANTISEPTIC COLD SORE GEL WITH DA [Suspect]
     Indication: INGROWN HAIR
     Dosage: UNK, ONCE
     Route: 061
     Dates: start: 20110428, end: 20110428

REACTIONS (4)
  - APPLICATION SITE ERYTHEMA [None]
  - SKIN DISCOLOURATION [None]
  - INFECTED SKIN ULCER [None]
  - SKIN ULCER [None]
